FAERS Safety Report 7402627-1 (Version None)
Quarter: 2011Q2

REPORT INFORMATION
  Report Type: 
  Country: None (occurrence: None)
  Receive Date: 20110408
  Receipt Date: 20110404
  Transmission Date: 20111010
  Serious: Yes (Hospitalization)
  Sender: FDA-Public Use
  Company Number: US-US-EMD SERONO, INC.-7050668

PATIENT
  Sex: Female
  Weight: 60 kg

DRUGS (5)
  1. DITROPAN [Concomitant]
  2. NEURONTIN [Concomitant]
  3. REBIF [Suspect]
     Indication: MULTIPLE SCLEROSIS
     Route: 058
     Dates: start: 20050328
  4. BACLOFEN [Concomitant]
  5. ALBUTEROL [Concomitant]

REACTIONS (1)
  - GAIT DISTURBANCE [None]
